FAERS Safety Report 6668219-7 (Version None)
Quarter: 2010Q2

REPORT INFORMATION
  Report Type: 
  Country: None (occurrence: None)
  Receive Date: 20100405
  Receipt Date: 20100405
  Transmission Date: 20101027
  Serious: No
  Sender: FDA-Public Use
  Company Number: None

PATIENT
  Sex: Female
  Weight: 90.7194 kg

DRUGS (2)
  1. RITALIN [Suspect]
     Indication: DISTURBANCE IN ATTENTION
     Dates: start: 20100126, end: 20100330
  2. RITALIN [Suspect]
     Indication: FATIGUE
     Dates: start: 20100126, end: 20100330

REACTIONS (1)
  - DRUG INEFFECTIVE [None]
